FAERS Safety Report 6681539-5 (Version None)
Quarter: 2010Q2

REPORT INFORMATION
  Report Type: 
  Country: None (occurrence: None)
  Receive Date: 20100414
  Receipt Date: 20100402
  Transmission Date: 20101027
  Serious: Yes (Hospitalization)
  Sender: FDA-Public Use
  Company Number: PHHY2010FR21328

PATIENT
  Sex: Female

DRUGS (11)
  1. NEORAL [Suspect]
     Dosage: UNK
     Dates: end: 20100301
  2. NORSET [Suspect]
     Dosage: UNK
     Dates: end: 20100319
  3. LEXOMIL [Suspect]
  4. ESOMEPRAZOLE [Suspect]
     Dosage: UNK
     Dates: start: 20100125, end: 20100322
  5. OFLOCET [Suspect]
     Dosage: UNK
     Dates: start: 20100101
  6. CLAMOXYL [Suspect]
     Dosage: UNK
     Dates: start: 20100129, end: 20100131
  7. COZAAR [Concomitant]
  8. CACIT [Concomitant]
  9. LASIX [Concomitant]
  10. TAHOR [Concomitant]
  11. PLAVIX [Concomitant]

REACTIONS (7)
  - COLITIS COLLAGENOUS [None]
  - DRUG HYPERSENSITIVITY [None]
  - DRUG INEFFECTIVE [None]
  - HAEMATOCHEZIA [None]
  - IRON DEFICIENCY ANAEMIA [None]
  - PYELONEPHRITIS [None]
  - TOXIC SHOCK SYNDROME [None]
